FAERS Safety Report 6716489-9 (Version None)
Quarter: 2010Q2

REPORT INFORMATION
  Report Type: 
  Country: None (occurrence: None)
  Receive Date: 20100507
  Receipt Date: 20100506
  Transmission Date: 20101027
  Serious: Yes (Hospitalization, Other)
  Sender: FDA-Public Use
  Company Number: BR-ROXANE LABORATORIES, INC.-2010-RO-00530RO

PATIENT
  Age: 36 Year
  Sex: Male

DRUGS (6)
  1. TOPIRAMATE [Suspect]
     Dosage: 25 MG
  2. TOPIRAMATE [Suspect]
     Dosage: 50 MG
  3. OXCARBAZEPINE [Suspect]
     Dosage: 900 MG
  4. ATENOLOL [Suspect]
     Indication: HYPERTENSION
     Dosage: 50 MG
  5. CHLORTHALIDONE [Suspect]
     Indication: HYPERTENSION
     Dosage: 12.5 MG
  6. TRAZODONE HYDROCHLORIDE [Suspect]
     Dosage: 300 MG

REACTIONS (2)
  - ANGLE CLOSURE GLAUCOMA [None]
  - WEIGHT INCREASED [None]
